FAERS Safety Report 14391322 (Version 1)
Quarter: 2018Q1

REPORT INFORMATION
  Report Type: Spontaneous
  Country: US (occurrence: US)
  Receive Date: 20180112
  Receipt Date: 20180112
  Transmission Date: 20180509
  Serious: Yes (Hospitalization)
  Sender: FDA-Public Use
  Company Number: None

PATIENT
  Age: 45 Year
  Sex: Male
  Weight: 79.8 kg

DRUGS (19)
  1. PROCHLORPERAZINE. [Concomitant]
     Active Substance: PROCHLORPERAZINE
  2. METRONIDAZOLE. [Concomitant]
     Active Substance: METRONIDAZOLE
  3. IBUPROFEN. [Concomitant]
     Active Substance: IBUPROFEN
  4. LISINOPRIL. [Concomitant]
     Active Substance: LISINOPRIL
  5. TRAZODONE [Concomitant]
     Active Substance: TRAZODONE HYDROCHLORIDE
  6. CIPROFLOXACIN HCL [Concomitant]
     Active Substance: CIPROFLOXACIN HYDROCHLORIDE
  7. ALBITUROL [Concomitant]
  8. TEMOZOLOMIDE 100MG [Suspect]
     Active Substance: TEMOZOLOMIDE
     Indication: NEUROENDOCRINE TUMOUR
     Dosage: 200 DAY 10-14 ORAL
     Route: 048
     Dates: start: 20160608, end: 20171011
  9. SIMETHICONE (DIMETHICONE) [Concomitant]
     Active Substance: DIMETHICONE
  10. MAGNESIUM CITRATE. [Concomitant]
     Active Substance: MAGNESIUM CITRATE
  11. BEVACIZUMAB 400MG/16ML VIAL [Suspect]
     Active Substance: BEVACIZUMAB
     Indication: NEUROENDOCRINE TUMOUR
     Dosage: Q14 IV
     Route: 042
     Dates: start: 20160608, end: 20171121
  12. ONDANSETRON [Concomitant]
     Active Substance: ONDANSETRON
  13. LACTULOSE. [Concomitant]
     Active Substance: LACTULOSE
  14. CAPECITABINE. [Suspect]
     Active Substance: CAPECITABINE
     Indication: NEUROENDOCRINE TUMOUR
     Dosage: DAY 1-14 ORAL
     Route: 048
     Dates: start: 20160608, end: 20171011
  15. POLYETHELENE GLYCOL [Concomitant]
     Active Substance: POLYETHYLENE GLYCOL 3350
  16. SENOKOT [Concomitant]
     Active Substance: SENNOSIDES
  17. DOCUSATE [Concomitant]
     Active Substance: DOCUSATE
  18. OXYCODONE [Concomitant]
     Active Substance: OXYCODONE
  19. SENNA [Concomitant]
     Active Substance: SENNA LEAF\SENNOSIDES\SENNOSIDES A AND B

REACTIONS (4)
  - Disease progression [None]
  - Vomiting [None]
  - Abdominal pain [None]
  - Nausea [None]

NARRATIVE: CASE EVENT DATE: 20171220
